FAERS Safety Report 16580976 (Version 1)
Quarter: 2019Q3

REPORT INFORMATION
  Report Type: Spontaneous
  Country: FR (occurrence: FR)
  Receive Date: 20190716
  Receipt Date: 20190716
  Transmission Date: 20191004
  Serious: Yes (Death, Hospitalization)
  Sender: FDA-Public Use
  Company Number: FR-TEVA-2019-FR-1077893

PATIENT
  Age: 25 Year
  Sex: Male

DRUGS (1)
  1. IBUPROFEN. [Suspect]
     Active Substance: IBUPROFEN
     Indication: PHARYNGITIS
     Route: 048

REACTIONS (14)
  - Septic shock [Fatal]
  - Haemorrhage intracranial [Not Recovered/Not Resolved]
  - Multiple organ dysfunction syndrome [Unknown]
  - Disseminated intravascular coagulation [Not Recovered/Not Resolved]
  - Rhabdomyolysis [Not Recovered/Not Resolved]
  - Sepsis [Unknown]
  - Monoplegia [Unknown]
  - Shock haemorrhagic [Not Recovered/Not Resolved]
  - Acute kidney injury [Not Recovered/Not Resolved]
  - Muscle necrosis [Fatal]
  - Clostridial infection [Fatal]
  - Circulatory collapse [Not Recovered/Not Resolved]
  - Depressed level of consciousness [Unknown]
  - Agranulocytosis [Unknown]
